FAERS Safety Report 5772058-9 (Version None)
Quarter: 2008Q2

REPORT INFORMATION
  Report Type: 
  Country: None (occurrence: None)
  Receive Date: 20080613
  Receipt Date: 20080602
  Transmission Date: 20081010
  Serious: Yes (Other)
  Sender: FDA-Public Use
  Company Number: AU-WYE-G01613508

PATIENT
  Sex: Male

DRUGS (5)
  1. EFFEXOR XR [Suspect]
     Indication: DIVORCED
     Route: 048
     Dates: start: 20010101, end: 20080522
  2. EFFEXOR XR [Suspect]
     Route: 048
     Dates: start: 20080523, end: 20080529
  3. EFFEXOR XR [Suspect]
     Route: 048
     Dates: start: 20080602
  4. MICARDIS [Concomitant]
     Indication: BLOOD PRESSURE
     Route: 048
  5. MOCLOBEMIDE [Suspect]
     Dosage: ^TWO TIMES THE RECOMMENDED DAILY DOSE^
     Route: 048
     Dates: start: 20080601

REACTIONS (10)
  - ABNORMAL DREAMS [None]
  - BALANCE DISORDER [None]
  - DISSOCIATION [None]
  - DRUG WITHDRAWAL SYNDROME [None]
  - HYPOKINESIA [None]
  - INSOMNIA [None]
  - LOSS OF LIBIDO [None]
  - MIDDLE INSOMNIA [None]
  - NAUSEA [None]
  - VERTIGO [None]
